FAERS Safety Report 7349952-0 (Version None)
Quarter: 2011Q1

REPORT INFORMATION
  Report Type: 
  Country: None (occurrence: None)
  Receive Date: 20110314
  Receipt Date: 20110228
  Transmission Date: 20110831
  Serious: Yes (Other)
  Sender: FDA-Public Use
  Company Number: GB-GENENTECH-295681

PATIENT
  Age: 17 Year
  Sex: Male

DRUGS (20)
  1. COTRIM [Suspect]
     Indication: PROPHYLAXIS
     Dosage: UNK
     Route: 065
  2. ITRACONAZOLE [Suspect]
     Indication: PROPHYLAXIS
     Dosage: UNK
     Route: 065
  3. DEXRAZOXANE [Suspect]
     Indication: PRODUCT USED FOR UNKNOWN INDICATION
     Dosage: UNK
     Route: 065
  4. CYCLOPHOSPHAMIDE [Suspect]
     Indication: PRODUCT USED FOR UNKNOWN INDICATION
     Dosage: UNK
     Route: 065
  5. DOXORUBICIN [Suspect]
     Indication: BURKITT'S LYMPHOMA
     Dosage: 200 MG/M2, UNK
     Route: 065
  6. ARA-C [Suspect]
     Indication: BURKITT'S LYMPHOMA
     Dosage: 1000 MG/M2, UNK
     Route: 065
  7. MERCAPTOPURINE [Suspect]
     Indication: PRODUCT USED FOR UNKNOWN INDICATION
     Route: 065
  8. THIOGUANINE [Suspect]
     Indication: BURKITT'S LYMPHOMA
     Dosage: 750 MG/M2, UNK
     Route: 065
  9. TACROLIMUS [Suspect]
     Dosage: 4-5 A?G/L, UNK
     Route: 065
  10. ACYCLOVIR [Suspect]
     Indication: PROPHYLAXIS
     Dosage: UNK
     Route: 065
  11. MERCAPTOPURINE [Suspect]
     Indication: BURKITT'S LYMPHOMA
     Dosage: UNK
     Route: 065
  12. METHOTREXATE [Suspect]
     Indication: BURKITT'S LYMPHOMA
     Dosage: 4 G/M2, UNK
     Route: 037
  13. ONCOVIN [Suspect]
     Indication: BURKITT'S LYMPHOMA
     Dosage: UNK
     Route: 065
  14. RITUXIMAB [Suspect]
     Indication: BURKITT'S LYMPHOMA
     Dosage: 375 MG/M2, UNK
     Route: 065
  15. VP 16 [Suspect]
     Indication: BURKITT'S LYMPHOMA
     Dosage: 400 MG/M2, UNK
     Route: 065
  16. TACROLIMUS [Suspect]
     Indication: IMMUNOSUPPRESSION
     Dosage: UNK
     Route: 065
  17. VINCRISTINE [Suspect]
     Indication: BURKITT'S LYMPHOMA
     Dosage: 6 MG/M2, UNK
     Route: 065
  18. PREDNISOLONE [Suspect]
     Indication: BURKITT'S LYMPHOMA
     Dosage: 4 G/M2, UNK
     Route: 065
  19. CAELYX [Suspect]
     Indication: BURKITT'S LYMPHOMA
     Route: 042
  20. PREDNISONE TAB [Concomitant]
     Indication: PRODUCT USED FOR UNKNOWN INDICATION
     Dosage: UNK

REACTIONS (4)
  - EPSTEIN-BARR VIRAEMIA [None]
  - NEUTROPENIA [None]
  - RENAL IMPAIRMENT [None]
  - LYMPHOPROLIFERATIVE DISORDER [None]
